FAERS Safety Report 13686034 (Version 1)
Quarter: 2017Q2

REPORT INFORMATION
  Report Type: Spontaneous
  Country: US (occurrence: US)
  Receive Date: 20170623
  Receipt Date: 20170623
  Transmission Date: 20170830
  Serious: Yes (Hospitalization)
  Sender: FDA-Public Use
  Company Number: US-ROCHE-1095163

PATIENT
  Sex: Female
  Weight: 96.25 kg

DRUGS (10)
  1. CELLCEPT [Suspect]
     Active Substance: MYCOPHENOLATE MOFETIL\MYCOPHENOLATE MOFETIL HYDROCHLORIDE
     Indication: AUTOIMMUNE HEPATITIS
     Route: 048
     Dates: start: 2006
  2. EXFORGE [Concomitant]
     Active Substance: AMLODIPINE BESYLATE\VALSARTAN
     Route: 048
  3. TEKTURNA [Concomitant]
     Active Substance: ALISKIREN HEMIFUMARATE
     Route: 048
  4. METOPROLOL TARTRATE. [Concomitant]
     Active Substance: METOPROLOL TARTRATE
     Route: 048
  5. URSODIOL. [Concomitant]
     Active Substance: URSODIOL
     Route: 048
  6. PREDNISOLONE. [Concomitant]
     Active Substance: PREDNISOLONE
     Indication: POLYMYOSITIS
     Route: 048
     Dates: start: 2006
  7. AMOX TR-K CLV [Concomitant]
     Active Substance: AMOXICILLIN\CLAVULANATE POTASSIUM
     Route: 048
  8. LANTUS [Concomitant]
     Active Substance: INSULIN GLARGINE
  9. HUMALOG [Concomitant]
     Active Substance: INSULIN LISPRO
     Route: 065
  10. TRAMADOL HCL [Concomitant]
     Active Substance: TRAMADOL HYDROCHLORIDE
     Route: 048

REACTIONS (2)
  - Treatment noncompliance [Unknown]
  - Drug dose omission [Unknown]
